FAERS Safety Report 12400855 (Version 2)
Quarter: 2016Q2

REPORT INFORMATION
  Report Type: Spontaneous
  Country: US (occurrence: US)
  Receive Date: 20160525
  Receipt Date: 20160525
  Transmission Date: 20160815
  Serious: No
  Sender: FDA-Public Use
  Company Number: US-SA-2015SA130120

PATIENT
  Age: 67 Year
  Sex: Female

DRUGS (2)
  1. LANTUS [Suspect]
     Active Substance: INSULIN GLARGINE
     Indication: TYPE 1 DIABETES MELLITUS
     Dosage: FORM  :VIAL DOSE:60 UNIT(S)
     Route: 048
     Dates: start: 2007
  2. HUMALOG [Concomitant]
     Active Substance: INSULIN LISPRO

REACTIONS (2)
  - Injection site mass [Unknown]
  - Eye disorder [Unknown]

NARRATIVE: CASE EVENT DATE: 2015
